FAERS Safety Report 8350846-2 (Version None)
Quarter: 2012Q2

REPORT INFORMATION
  Report Type: 
  Country: None (occurrence: None)
  Receive Date: 20120510
  Receipt Date: 20120427
  Transmission Date: 20120825
  Serious: Yes (Other)
  Sender: FDA-Public Use
  Company Number: DE-BAYER-2012-045486

PATIENT
  Sex: Female

DRUGS (1)
  1. MIRENA [Suspect]
     Dosage: 20 MCG/24HR, CONT
     Route: 015
     Dates: start: 20060101

REACTIONS (9)
  - HYPOAESTHESIA [None]
  - CHOLECYSTECTOMY [None]
  - MALAISE [None]
  - ANGER [None]
  - DIZZINESS [None]
  - DIARRHOEA [None]
  - HYPERHIDROSIS [None]
  - FATIGUE [None]
  - MOOD SWINGS [None]
